FAERS Safety Report 6655194-4 (Version None)
Quarter: 2010Q1

REPORT INFORMATION
  Report Type: 
  Country: None (occurrence: None)
  Receive Date: 20100329
  Receipt Date: 20100318
  Transmission Date: 20100710
  Serious: Yes (Other)
  Sender: FDA-Public Use
  Company Number: BE-ASTRAZENECA-2010SE12179

PATIENT
  Age: 75 Year
  Sex: Female
  Weight: 75 kg

DRUGS (9)
  1. SYMBICORT [Suspect]
     Indication: CHRONIC OBSTRUCTIVE PULMONARY DISEASE
     Dosage: 160/4.5 THREE PUFFS PER DAY
     Route: 055
     Dates: start: 20100311, end: 20100318
  2. SYMBICORT [Suspect]
     Route: 055
  3. MARCUMAR [Suspect]
     Indication: VARICOSE VEIN
     Dosage: ONE PER DAY
     Route: 048
     Dates: end: 20100318
  4. XYZAL [Concomitant]
     Indication: VEIN DISORDER
     Dosage: ONE DAILY
     Route: 048
     Dates: start: 20100312, end: 20100313
  5. FOLAVIT [Concomitant]
     Indication: HYPOVITAMINOSIS
     Dosage: ONE DAILY FROM MORE THAN TWO YEARS
     Route: 048
  6. ALDACTAZINE [Concomitant]
     Indication: HYPOVITAMINOSIS
     Dosage: ONE DAILY FROM MORE THAN TWO YEARS
     Route: 048
  7. NEUROBION [Concomitant]
     Indication: HYPOVITAMINOSIS
     Dosage: ONE PER WEEK FROM MORE THAN TWO YEARS
     Route: 030
  8. LIPITOR [Concomitant]
     Indication: BLOOD CHOLESTEROL
     Dosage: ONE PER DAY FROM MORE THAN TWO YEARS
     Route: 048
  9. PLAVIX [Concomitant]
     Indication: THROMBOPHLEBITIS
     Dosage: ONE PER DAY FROM MORE THAN TWO YEARS
     Route: 048
     Dates: end: 20100318

REACTIONS (1)
  - EPISTAXIS [None]
